FAERS Safety Report 5086257-5 (Version None)
Quarter: 2006Q3

REPORT INFORMATION
  Report Type: 
  Country: None (occurrence: None)
  Receive Date: 20060703
  Receipt Date: 20060220
  Transmission Date: 20061208
  Serious: No
  Sender: FDA-Public Use
  Company Number: 2006S1001554

PATIENT
  Age: 36 Year
  Sex: Male

DRUGS (8)
  1. CLOZAPINE [Suspect]
     Indication: BIPOLAR DISORDER
     Dosage: SEE IMAGE
     Route: 048
     Dates: start: 20040129
  2. CLOZAPINE [Suspect]
     Indication: SCHIZOPHRENIA
     Dosage: SEE IMAGE
     Route: 048
     Dates: start: 20040129
  3. QUETIAPINE FUMARATE [Concomitant]
  4. CALCIUM CITRATE [Concomitant]
  5. LEVOTHYROXINE SODIUM [Concomitant]
  6. DOCUSATE SODIUM [Concomitant]
  7. LAMOTRIGINE [Concomitant]
  8. METHYLCELLULOSE [Concomitant]

REACTIONS (2)
  - GRANULOCYTOPENIA [None]
  - LEUKOPENIA [None]
